FAERS Safety Report 8118832-5 (Version None)
Quarter: 2012Q1

REPORT INFORMATION
  Report Type: 
  Country: None (occurrence: None)
  Receive Date: 20120202
  Receipt Date: 20120119
  Transmission Date: 20120608
  Serious: Yes (Life-Threatening, Hospitalization)
  Sender: FDA-Public Use
  Company Number: 12-049

PATIENT
  Age: 67 Year
  Sex: Male

DRUGS (1)
  1. IBUPROFEN [Suspect]
     Indication: SCIATICA
     Dosage: 800 MG, ORAL
     Route: 048
     Dates: start: 20110901

REACTIONS (25)
  - HYPERBILIRUBINAEMIA [None]
  - ANAEMIA [None]
  - PYREXIA [None]
  - CONSTIPATION [None]
  - HYPERHIDROSIS [None]
  - BLOOD CREATININE INCREASED [None]
  - IMMUNE SYSTEM DISORDER [None]
  - DECREASED APPETITE [None]
  - WEIGHT DECREASED [None]
  - LEUKOCYTOSIS [None]
  - LABORATORY TEST ABNORMAL [None]
  - HAEMATURIA [None]
  - SOMNOLENCE [None]
  - BLOOD LACTATE DEHYDROGENASE INCREASED [None]
  - ALBUMINURIA [None]
  - SCIATICA [None]
  - OCULAR ICTERUS [None]
  - ANAEMIA HAEMOLYTIC AUTOIMMUNE [None]
  - ASPARTATE AMINOTRANSFERASE INCREASED [None]
  - ERUCTATION [None]
  - HYPERTENSION [None]
  - BLOOD LACTATE DEHYDROGENASE DECREASED [None]
  - URINE ANALYSIS ABNORMAL [None]
  - JAUNDICE [None]
  - PAIN [None]
